FAERS Safety Report 16342112 (Version 4)
Quarter: 2019Q3

REPORT INFORMATION
  Report Type: Spontaneous
  Country: GR (occurrence: GR)
  Receive Date: 20190522
  Receipt Date: 20190731
  Transmission Date: 20191004
  Serious: Yes (Other)
  Sender: FDA-Public Use
  Company Number: GR-PFIZER INC-2019215068

PATIENT
  Age: 48 Year
  Sex: Male

DRUGS (1)
  1. INFLIXIMAB PFIZER [Suspect]
     Active Substance: INFLIXIMAB
     Indication: COLITIS ULCERATIVE
     Dosage: UNK, CYCLIC (EVERY 8 WEEKS FOR THE PAST 7 YEARS)
     Route: 065

REACTIONS (4)
  - Hepatic cirrhosis [Unknown]
  - Transaminases increased [Recovering/Resolving]
  - Hepatic steatosis [Unknown]
  - Autoimmune hepatitis [Recovering/Resolving]
